APPROVED DRUG PRODUCT: ZYLOPRIM
Active Ingredient: ALLOPURINOL
Strength: 200MG
Dosage Form/Route: TABLET;ORAL
Application: N016084 | Product #003 | TE Code: AB
Applicant: CASPER PHARMA LLC
Approved: Aug 4, 2022 | RLD: Yes | RS: No | Type: RX